FAERS Safety Report 17985516 (Version 1)
Quarter: 2020Q3

REPORT INFORMATION
  Report Type: Spontaneous
  Country: GB (occurrence: GB)
  Receive Date: 20200706
  Receipt Date: 20200706
  Transmission Date: 20201103
  Serious: Yes (Life-Threatening)
  Sender: FDA-Public Use
  Company Number: GB-MYLANLABS-2020M1061932

PATIENT
  Age: 62 Year
  Sex: Female
  Weight: 72 kg

DRUGS (22)
  1. CLARITHROMYCIN. [Suspect]
     Active Substance: CLARITHROMYCIN
     Indication: PRODUCT USED FOR UNKNOWN INDICATION
     Dosage: 500 MILLIGRAM
     Dates: start: 20200131
  2. FOSTAIR [Concomitant]
     Active Substance: BECLOMETHASONE\FORMOTEROL
     Dosage: 4 DOSAGE FORM, QD
     Dates: start: 20191018
  3. PARACETAMOL [Concomitant]
     Active Substance: ACETAMINOPHEN
     Dosage: 2 DOSAGE FORM, QID,FOUR TIMES DAILY.
     Dates: start: 20191018
  4. OMEPRAZOLE. [Concomitant]
     Active Substance: OMEPRAZOLE
     Dosage: 1 DOSAGE FORM, QD
     Dates: start: 20191018
  5. PREDNISOLONE. [Concomitant]
     Active Substance: PREDNISOLONE
     Dosage: 6 DOSAGE FORM, QD  ONLY STANDBY...
     Dates: start: 20191018
  6. BRALTUS [Concomitant]
     Active Substance: TIOTROPIUM BROMIDE
     Dosage: 1 DOSAGE FORM, QD
     Route: 055
     Dates: start: 20191018
  7. RAMIPRIL. [Concomitant]
     Active Substance: RAMIPRIL
     Dosage: 1 DOSAGE FORM, QD
     Dates: start: 20191018
  8. HYLO?FORTE [Concomitant]
     Active Substance: HYALURONATE SODIUM
     Dosage: 1 DOSAGE FORM, PRN  INTO THE AFFECTED EYE(S) WHEN NEED...
     Dates: start: 20191018
  9. GLYCERYL TRINITRATE [Concomitant]
     Active Substance: NITROGLYCERIN
     Dosage: UNK UNK, PRN 1 ? 2 SPRAYS.
     Dates: start: 20191018
  10. CITALOPRAM [Concomitant]
     Active Substance: CITALOPRAM HYDROBROMIDE
     Dosage: 30 MILLIGRAM, QD  1 IN THE MORNING
     Dates: start: 20191127
  11. TILDIEM [Concomitant]
     Active Substance: DILTIAZEM HYDROCHLORIDE
     Dosage: 1 DOSAGE FORM, QD
     Dates: start: 20191018
  12. CLOPIDOGREL [Concomitant]
     Active Substance: CLOPIDOGREL BISULFATE
     Dosage: 1 DOSAGE FORM, QD
     Dates: start: 20191018
  13. SIMVASTATIN. [Concomitant]
     Active Substance: SIMVASTATIN
     Dosage: 1 DOSAGE FORM, QD   AT NIGHT
     Dates: start: 20191018
  14. ISOSORBIDE MONONITRATE. [Concomitant]
     Active Substance: ISOSORBIDE MONONITRATE
     Dosage: 2 DOSAGE FORM, QD
     Dates: start: 20191018
  15. LEVOTHYROXINE. [Concomitant]
     Active Substance: LEVOTHYROXINE
     Dosage: 1 DOSAGE FORM, QD   75MCG/100MCG ON ALTERNATE DAYS ON ONCE DAILY
     Dates: start: 20191018
  16. CARBOCISTEINE [Concomitant]
     Active Substance: CARBOCYSTEINE
     Dosage: 4 DOSAGE FORM, QD
     Dates: start: 20191018
  17. BISACODYL. [Concomitant]
     Active Substance: BISACODYL
     Dosage: 2 DOSAGE FORM, QD  AT NIGHT.
     Dates: start: 20191018
  18. LANSOPRAZOLE. [Suspect]
     Active Substance: LANSOPRAZOLE
     Indication: PRODUCT USED FOR UNKNOWN INDICATION
     Dosage: 30 MILLIGRAM
     Dates: start: 20200131
  19. AMOXICILLIN. [Suspect]
     Active Substance: AMOXICILLIN
     Indication: PRODUCT USED FOR UNKNOWN INDICATION
     Dosage: 500 MILLIGRAM
     Dates: start: 20200131
  20. BISOPROLOL [Concomitant]
     Active Substance: BISOPROLOL
     Dosage: 2 DOSAGE FORM, QD
     Dates: start: 20191018
  21. DOXYCYCLINE. [Concomitant]
     Active Substance: DOXYCYCLINE
     Dosage: 1 DOSAGE FORM, PRN  FOR A 2 WEEK COURSE.
     Dates: start: 20191018
  22. FULTIUM D3 [Concomitant]
     Active Substance: CHOLECALCIFEROL
     Dosage: UNK  FOR MAINTENANCE THERAPY
     Dates: start: 20191018

REACTIONS (1)
  - Swelling [Unknown]

NARRATIVE: CASE EVENT DATE: 20200522
